FAERS Safety Report 18929007 (Version 3)
Quarter: 2023Q1

REPORT INFORMATION
  Report Type: Spontaneous
  Country: US (occurrence: None)
  Receive Date: 20210223
  Receipt Date: 20230223
  Transmission Date: 20230418
  Serious: No
  Sender: FDA-Public Use
  Company Number: US-ROCHE-2607955

PATIENT
  Sex: Female

DRUGS (6)
  1. NUTROPIN [Suspect]
     Active Substance: SOMATROPIN
     Indication: Hypopituitarism
     Route: 058
     Dates: start: 20200507
  2. NUTROPIN [Suspect]
     Active Substance: SOMATROPIN
  3. NUTROPIN [Suspect]
     Active Substance: SOMATROPIN
     Route: 058
     Dates: start: 202008
  4. NUTROPIN [Suspect]
     Active Substance: SOMATROPIN
  5. NUTROPIN [Suspect]
     Active Substance: SOMATROPIN
     Dosage: DAILY
     Route: 058
     Dates: start: 202005
  6. NUTROPIN [Suspect]
     Active Substance: SOMATROPIN

REACTIONS (2)
  - Therapeutic product ineffective [Unknown]
  - No adverse event [Unknown]
